FAERS Safety Report 24966785 (Version 1)
Quarter: 2025Q1

REPORT INFORMATION
  Report Type: Spontaneous
  Country: TR (occurrence: TR)
  Receive Date: 20250213
  Receipt Date: 20250213
  Transmission Date: 20250409
  Serious: Yes (Hospitalization, Other)
  Sender: DOUGLAS PHARMACEUTICALS
  Company Number: TR-DOUGLAS PHARMACEUTICALS AMERICA LIMITED-2025TSM00011

PATIENT
  Age: 48 Year
  Sex: Female

DRUGS (1)
  1. CLOZAPINE [Suspect]
     Active Substance: CLOZAPINE
     Indication: Schizophrenia
     Dosage: 500 MG, 1X/DAY

REACTIONS (3)
  - Catatonia [Recovered/Resolved]
  - Disease recurrence [Recovered/Resolved]
  - Drug withdrawal syndrome [Recovered/Resolved]
